FAERS Safety Report 9020607 (Version 1)
Quarter: 2013Q1

REPORT INFORMATION
  Report Type: Spontaneous
  Country: US (occurrence: US)
  Receive Date: 20130119
  Receipt Date: 20130119
  Transmission Date: 20140127
  Serious: No
  Sender: FDA-Public Use
  Company Number: US-ALLERGAN-1207026US

PATIENT
  Age: 80 Year
  Sex: Female

DRUGS (3)
  1. BOTOX? [Suspect]
     Indication: BLEPHAROSPASM
     Dosage: 7.5 UNITS, SINGLE
     Route: 030
     Dates: start: 20120427, end: 20120427
  2. BOTOX? [Suspect]
     Dosage: UNK
     Route: 030
  3. BOTOX? [Suspect]
     Dosage: UNK
     Route: 030

REACTIONS (6)
  - Visual impairment [Not Recovered/Not Resolved]
  - Adverse drug reaction [Unknown]
  - Dry mouth [Not Recovered/Not Resolved]
  - Vision blurred [Not Recovered/Not Resolved]
  - Diplopia [Not Recovered/Not Resolved]
  - Eyelid ptosis [Recovered/Resolved]
